FAERS Safety Report 6612343-1 (Version None)
Quarter: 2010Q1

REPORT INFORMATION
  Report Type: 
  Country: None (occurrence: None)
  Receive Date: 20100302
  Receipt Date: 20100302
  Transmission Date: 20100710
  Serious: Yes (Hospitalization)
  Sender: FDA-Public Use
  Company Number: None

PATIENT
  Age: 67 Year
  Sex: Male
  Weight: 129.7287 kg

DRUGS (19)
  1. BEVACIZUMAB GENENTECH [Suspect]
     Indication: OESOPHAGEAL ADENOCARCINOMA
     Dosage: 900 MG EVERY 21 DAYS IV
     Route: 042
     Dates: start: 20090516, end: 20100128
  2. DOCETAXEL [Suspect]
     Indication: OESOPHAGEAL ADENOCARCINOMA
     Dosage: 130 MG EVERY 21 DAYS IV
     Route: 042
     Dates: start: 20090516, end: 20100128
  3. AVAPRO [Concomitant]
  4. SOTALOL HCL [Concomitant]
  5. LANOXIN [Concomitant]
  6. ZOLOFT [Concomitant]
  7. KEPPRA [Concomitant]
  8. LUNESTA [Concomitant]
  9. ACETAMINOPHEN [Concomitant]
  10. METAMUCIL-2 [Concomitant]
  11. FLONASE [Concomitant]
  12. NEXIUM [Concomitant]
  13. CLARITIN [Concomitant]
  14. CALTRATE [Concomitant]
  15. LASIX [Concomitant]
  16. SPIRONOLACTONE [Concomitant]
  17. COMPAZINE [Concomitant]
  18. MUCINEX [Concomitant]
  19. ROSADERM [Concomitant]

REACTIONS (6)
  - CHOLELITHIASIS [None]
  - DYSPEPSIA [None]
  - HIATUS HERNIA [None]
  - HYPONATRAEMIA [None]
  - OESOPHAGITIS [None]
  - PULMONARY EMBOLISM [None]
